FAERS Safety Report 6772969-1 (Version None)
Quarter: 2010Q2

REPORT INFORMATION
  Report Type: 
  Country: None (occurrence: None)
  Receive Date: 20100616
  Receipt Date: 20100608
  Transmission Date: 20101027
  Serious: Yes (Other)
  Sender: FDA-Public Use
  Company Number: US-JNJFOC-20100602912

PATIENT
  Age: 63 Year
  Sex: Female
  Weight: 71.67 kg

DRUGS (3)
  1. TYLENOL (CAPLET) [Suspect]
     Indication: HEADACHE
     Route: 048
  2. TYLENOL (CAPLET) [Suspect]
     Indication: ANALGESIC THERAPY
     Route: 048
  3. DIURETIC [Concomitant]
     Indication: DIURETIC THERAPY
     Route: 065

REACTIONS (7)
  - ABDOMINAL PAIN UPPER [None]
  - CHEST PAIN [None]
  - COLITIS ULCERATIVE [None]
  - DIARRHOEA [None]
  - GASTROOESOPHAGEAL REFLUX DISEASE [None]
  - HAEMATOCHEZIA [None]
  - PRODUCT QUALITY ISSUE [None]
